FAERS Safety Report 24638269 (Version 2)
Quarter: 2025Q1

REPORT INFORMATION
  Report Type: Spontaneous
  Country: US (occurrence: US)
  Receive Date: 20241119
  Receipt Date: 20250109
  Transmission Date: 20250409
  Serious: Yes (Other)
  Sender: PFIZER
  Company Number: US-PFIZER INC-PV202400148365

PATIENT
  Age: 10 Year
  Sex: Male
  Weight: 27.4 kg

DRUGS (2)
  1. GENOTROPIN [Suspect]
     Active Substance: SOMATROPIN
     Indication: Growth hormone deficiency
     Dosage: TAKING GENOTROPIN 1.2 MG QD (EVERYDAY)
     Route: 058
     Dates: start: 202305, end: 202405
  2. GENOTROPIN [Suspect]
     Active Substance: SOMATROPIN
     Dosage: TAKING GENOTROPIN 1.2 MG QD (EVERYDAY)
     Route: 058
     Dates: start: 202405

REACTIONS (2)
  - Grey matter heterotopia [Unknown]
  - Headache [Recovered/Resolved]
